FAERS Safety Report 10267020 (Version 1)
Quarter: 2014Q2

REPORT INFORMATION
  Report Type: Spontaneous
  Country: IE (occurrence: IE)
  Receive Date: 20140630
  Receipt Date: 20140630
  Transmission Date: 20141212
  Serious: Yes (Other)
  Sender: FDA-Public Use
  Company Number: IE-ROCHE-1426077

PATIENT
  Age: 25 Year
  Sex: Female
  Weight: 76.27 kg

DRUGS (6)
  1. XOLAIR [Suspect]
     Indication: ASTHMA
     Route: 030
     Dates: start: 20090514
  2. XOLAIR [Suspect]
     Route: 030
  3. XOLAIR [Suspect]
     Route: 030
  4. XOLAIR [Suspect]
     Route: 030
     Dates: end: 20110315
  5. VENTOLIN [Concomitant]
     Route: 065
     Dates: start: 20010320, end: 20140609
  6. SYMBICORT [Concomitant]
     Route: 065
     Dates: start: 20041001, end: 20140609

REACTIONS (5)
  - Hyperhidrosis [Not Recovered/Not Resolved]
  - Sinusitis [Unknown]
  - Myalgia [Unknown]
  - Injection site reaction [Unknown]
  - Incorrect route of drug administration [Unknown]
